FAERS Safety Report 17908907 (Version 3)
Quarter: 2020Q4

REPORT INFORMATION
  Report Type: Report from Study
  Country: CO (occurrence: CO)
  Receive Date: 20200617
  Receipt Date: 20201224
  Transmission Date: 20210113
  Serious: Yes (Hospitalization, Other)
  Sender: FDA-Public Use
  Company Number: CO-ASTELLAS-2018US053914

PATIENT
  Age: 41 Year
  Sex: Male

DRUGS (14)
  1. TACROLIMUS. [Suspect]
     Active Substance: TACROLIMUS
     Dosage: 5 MG, ONCE DAILY (1CAPSULE OF 5 MG)
     Route: 048
     Dates: start: 20200530
  2. TACROLIMUS. [Suspect]
     Active Substance: TACROLIMUS
     Dosage: 10 MG, ONCE DAILY (2 CAPSULES OF 5 MG)
     Route: 048
  3. LOSARTAN. [Concomitant]
     Active Substance: LOSARTAN
     Indication: HYPERTENSION
     Route: 048
  4. METOPROLOL. [Concomitant]
     Active Substance: METOPROLOL
     Indication: HYPERTENSION
     Dosage: 1 DF, ONCE DAILY IN THE MORNING
     Route: 048
  5. NIFEDIPINE. [Concomitant]
     Active Substance: NIFEDIPINE
     Route: 048
  6. NIFEDIPINE. [Concomitant]
     Active Substance: NIFEDIPINE
     Indication: HYPERTENSION
     Route: 048
     Dates: start: 20191110
  7. CALCITRIOL. [Concomitant]
     Active Substance: CALCITRIOL
     Indication: SUPPLEMENTATION THERAPY
     Route: 048
  8. MYCOPHENOLATE [Concomitant]
     Active Substance: MYCOPHENOLIC ACID
     Indication: IMMUNOSUPPRESSION
     Route: 048
     Dates: start: 20181126
  9. ENALAPRIL [Concomitant]
     Active Substance: ENALAPRIL
     Indication: BLOOD PRESSURE ABNORMAL
     Route: 048
  10. TACROLIMUS. [Suspect]
     Active Substance: TACROLIMUS
     Indication: RENAL TRANSPLANT
     Dosage: 10 MG, ONCE DAILY (2 CAPSULES OF 5MG)
     Route: 048
     Dates: start: 20181126
  11. TACROLIMUS. [Suspect]
     Active Substance: TACROLIMUS
     Route: 048
  12. TACROLIMUS. [Suspect]
     Active Substance: TACROLIMUS
     Dosage: 10 MG, ONCE DAILY (2 CAPSULES OF 5MG)
     Route: 048
     Dates: end: 202002
  13. MYCOPHENOLATE [Concomitant]
     Active Substance: MYCOPHENOLIC ACID
     Indication: TRANSPLANT
     Dosage: 1080 MG (3 CAPSULES OF 360 MG), UNKNOWN FREQ.
     Route: 048
  14. TACROLIMUS. [Suspect]
     Active Substance: TACROLIMUS
     Dosage: 10 MG, ONCE DAILY (EVERY 24 HOURS)
     Route: 048
     Dates: end: 202009

REACTIONS (29)
  - Headache [Recovering/Resolving]
  - Pneumonia [Recovering/Resolving]
  - Renal transplant failure [Recovering/Resolving]
  - Respiratory distress [Recovering/Resolving]
  - Blood creatinine increased [Unknown]
  - Chest pain [Recovering/Resolving]
  - General physical health deterioration [Unknown]
  - Kidney transplant rejection [Recovering/Resolving]
  - Diarrhoea [Recovered/Resolved]
  - Diarrhoea [Not Recovered/Not Resolved]
  - Hypertensive emergency [Unknown]
  - Product supply issue [Unknown]
  - Renal transplant failure [Not Recovered/Not Resolved]
  - Kidney transplant rejection [Recovering/Resolving]
  - Vomiting [Recovering/Resolving]
  - Weight decreased [Not Recovered/Not Resolved]
  - Diarrhoea [Recovered/Resolved]
  - Kidney transplant rejection [Not Recovered/Not Resolved]
  - Tremor [Recovering/Resolving]
  - Chest pain [Not Recovered/Not Resolved]
  - Pneumonia bacterial [Recovering/Resolving]
  - Cough [Recovering/Resolving]
  - Inflammation [Not Recovered/Not Resolved]
  - Chest pain [Not Recovered/Not Resolved]
  - Product distribution issue [Unknown]
  - Underweight [Recovering/Resolving]
  - Hypervolaemia [Unknown]
  - Hypertension [Not Recovered/Not Resolved]
  - Secondary immunodeficiency [Unknown]

NARRATIVE: CASE EVENT DATE: 20181029
